FAERS Safety Report 14954230 (Version 2)
Quarter: 2018Q2

REPORT INFORMATION
  Report Type: Report from Study
  Country: CA (occurrence: CA)
  Receive Date: 20180530
  Receipt Date: 20180607
  Transmission Date: 20180711
  Serious: Yes (Hospitalization)
  Sender: FDA-Public Use
  Company Number: CA-EISAI MEDICAL RESEARCH-EC-2018-039628

PATIENT
  Age: 61 Year
  Sex: Female

DRUGS (15)
  1. LANTUS [Concomitant]
     Active Substance: INSULIN GLARGINE
  2. IPSILAN [Concomitant]
  3. APO-HYDRO [Suspect]
     Active Substance: HYDROCHLOROTHIAZIDE
     Indication: HYPERTENSION
     Dosage: UNKNOWN
     Route: 048
     Dates: start: 201805, end: 201805
  4. CALCIUM [Concomitant]
     Active Substance: CALCIUM
  5. NOVO-RAPID INSULIN [Concomitant]
  6. LENVIMA [Suspect]
     Active Substance: LENVATINIB
     Route: 048
     Dates: start: 20180518, end: 20180520
  7. IRBESARTAN. [Concomitant]
     Active Substance: IRBESARTAN
  8. SYNTHROID [Concomitant]
     Active Substance: LEVOTHYROXINE SODIUM
  9. AMLODIPINE [Concomitant]
     Active Substance: AMLODIPINE BESYLATE
  10. LENVIMA [Suspect]
     Active Substance: LENVATINIB
     Indication: THYROID CANCER
     Route: 048
     Dates: end: 20180517
  11. ROCALTROL [Concomitant]
     Active Substance: CALCITRIOL
  12. ATORVASTATIN [Concomitant]
     Active Substance: ATORVASTATIN
  13. ATIVAN [Concomitant]
     Active Substance: LORAZEPAM
  14. NAPROXEN. [Concomitant]
     Active Substance: NAPROXEN
  15. HYDRALAZINE [Concomitant]
     Active Substance: HYDRALAZINE HYDROCHLORIDE

REACTIONS (12)
  - Cardiac failure [Recovering/Resolving]
  - Infrequent bowel movements [Unknown]
  - Ear pain [Recovered/Resolved]
  - Abdominal pain [Unknown]
  - Blood pressure increased [Unknown]
  - Malaise [Unknown]
  - Peripheral swelling [Recovering/Resolving]
  - Nausea [Recovered/Resolved]
  - Oropharyngeal pain [Recovered/Resolved]
  - Decreased appetite [Unknown]
  - Epistaxis [Unknown]
  - Eyelid oedema [Unknown]

NARRATIVE: CASE EVENT DATE: 2018
